FAERS Safety Report 6419139-4 (Version None)
Quarter: 2009Q4

REPORT INFORMATION
  Report Type: 
  Country: None (occurrence: None)
  Receive Date: 20091028
  Receipt Date: 20091028
  Transmission Date: 20100525
  Serious: Yes (Other)
  Sender: FDA-Public Use
  Company Number: None

PATIENT
  Age: 59 Year
  Sex: Female
  Weight: 68.4932 kg

DRUGS (1)
  1. NIASPAN [Suspect]
     Indication: BLOOD TRIGLYCERIDES INCREASED
     Dosage: 1 TABLET DAILY PO
     Route: 048
     Dates: start: 20091022, end: 20091026

REACTIONS (3)
  - ERYTHEMA [None]
  - RASH GENERALISED [None]
  - SKIN BURNING SENSATION [None]
